FAERS Safety Report 4337960-3 (Version None)
Quarter: 2004Q2

REPORT INFORMATION
  Report Type: 
  Country: None (occurrence: None)
  Receive Date: 20040407
  Receipt Date: 20040326
  Transmission Date: 20050107
  Serious: Yes (Other)
  Sender: FDA-Public Use
  Company Number: JP-JNJFOC-20040304437

PATIENT
  Age: 35 Year
  Sex: Female

DRUGS (3)
  1. RISPERDAL [Suspect]
     Indication: SCHIZOPHRENIA
     Dosage: 3 MG, IN 1 DAY, ORAL; SEE IMAGE
     Route: 048
     Dates: start: 20020325, end: 20020404
  2. RISPERDAL [Suspect]
     Indication: SCHIZOPHRENIA
     Dosage: 3 MG, IN 1 DAY, ORAL; SEE IMAGE
     Route: 048
     Dates: start: 20020405, end: 20020901
  3. RISPERDAL [Suspect]
     Indication: SCHIZOPHRENIA
     Dosage: 3 MG, IN 1 DAY, ORAL; SEE IMAGE
     Route: 048
     Dates: start: 20020901

REACTIONS (9)
  - CAESAREAN SECTION [None]
  - DEPRESSED LEVEL OF CONSCIOUSNESS [None]
  - DRUG EXPOSURE DURING PREGNANCY [None]
  - DRUG WITHDRAWAL SYNDROME NEONATAL [None]
  - NEONATAL DISORDER [None]
  - PREGNANCY [None]
  - PREMATURE SEPARATION OF PLACENTA [None]
  - SALIVARY HYPERSECRETION [None]
  - SOMNOLENCE NEONATAL [None]
